FAERS Safety Report 9858712 (Version 2)
Quarter: 2014Q1

REPORT INFORMATION
  Report Type: Spontaneous
  Country: KR (occurrence: KR)
  Receive Date: 20140131
  Receipt Date: 20140131
  Transmission Date: 20141002
  Serious: Yes (Hospitalization, Other)
  Sender: FDA-Public Use
  Company Number: KR-PFIZER INC-2014014935

PATIENT
  Age: 65 Year
  Sex: Female

DRUGS (4)
  1. ZYVOX [Suspect]
     Indication: INFLAMMATION
     Route: 048
  2. AVELOX [Suspect]
     Route: 048
  3. SANDIMMUN [Interacting]
     Indication: RENAL TRANSPLANT
     Dosage: UNK
     Route: 048
  4. ZITHROMAX [Concomitant]
     Route: 048

REACTIONS (8)
  - Drug interaction [Unknown]
  - Pneumonia [Unknown]
  - Haematemesis [Unknown]
  - Platelet count decreased [Unknown]
  - Red blood cell count decreased [Unknown]
  - Vomiting [Unknown]
  - Mouth injury [Unknown]
  - Diarrhoea [Unknown]
